FAERS Safety Report 7801396-0 (Version None)
Quarter: 2011Q4

REPORT INFORMATION
  Report Type: 
  Country: None (occurrence: None)
  Receive Date: 20111007
  Receipt Date: 20110926
  Transmission Date: 20120403
  Serious: Yes (Other)
  Sender: FDA-Public Use
  Company Number: US-BAYER-2010-008178

PATIENT
  Age: 23 Year
  Sex: Female
  Weight: 65.76 kg

DRUGS (5)
  1. NAPROXEN [Concomitant]
     Indication: PAIN
     Dosage: UNK UNK, PRN
     Route: 048
  2. YAZ [Suspect]
     Indication: PREMENSTRUAL SYNDROME
  3. PROVENTIL [Concomitant]
     Indication: WHEEZING
     Dosage: UNK UNK, PRN
     Route: 055
  4. YAZ [Suspect]
     Indication: CONTRACEPTION
     Dosage: UNK
     Dates: start: 20080401, end: 20100801
  5. IBUPROFEN [Concomitant]
     Indication: PAIN
     Dosage: UNK UNK, PRN
     Route: 048

REACTIONS (6)
  - INJURY [None]
  - CHOLECYSTITIS CHRONIC [None]
  - PAIN [None]
  - CHOLELITHIASIS [None]
  - ANXIETY [None]
  - EMOTIONAL DISTRESS [None]
